FAERS Safety Report 5736960-6 (Version None)
Quarter: 2008Q2

REPORT INFORMATION
  Report Type: 
  Country: None (occurrence: None)
  Receive Date: 20080512
  Receipt Date: 20080512
  Transmission Date: 20081010
  Serious: No
  Sender: FDA-Public Use
  Company Number: None

PATIENT
  Age: 40 Year
  Sex: Female
  Weight: 56.6996 kg

DRUGS (2)
  1. BOTOX [Suspect]
     Indication: EYELID DISORDER
     Dosage: 1
     Dates: start: 20080401
  2. BOTOX [Suspect]
     Indication: SKIN WRINKLING
     Dosage: 1
     Dates: start: 20080401

REACTIONS (2)
  - HEADACHE [None]
  - NO THERAPEUTIC RESPONSE [None]
